FAERS Safety Report 6370553-5 (Version None)
Quarter: 2009Q3

REPORT INFORMATION
  Report Type: 
  Country: None (occurrence: None)
  Receive Date: 20090923
  Receipt Date: 20090916
  Transmission Date: 20100115
  Serious: Yes (Other)
  Sender: FDA-Public Use
  Company Number: A0808356A

PATIENT
  Age: 5 Year

DRUGS (2)
  1. ADVAIR HFA [Suspect]
     Indication: ASTHMA
     Route: 055
  2. UNSPECIFIED MEDICATIONS [Suspect]
     Indication: ASTHMA

REACTIONS (5)
  - ASTHMA [None]
  - COLD SWEAT [None]
  - HYPOGLYCAEMIA [None]
  - LETHARGY [None]
  - PALLOR [None]
